FAERS Safety Report 14815240 (Version 1)
Quarter: 2018Q2

REPORT INFORMATION
  Report Type: Spontaneous
  Country: US (occurrence: US)
  Receive Date: 20180426
  Receipt Date: 20180426
  Transmission Date: 20180711
  Serious: No
  Sender: FDA-Public Use
  Company Number: PHEH2018US016033

PATIENT
  Sex: Male

DRUGS (2)
  1. PAZEO [Suspect]
     Active Substance: OLOPATADINE HYDROCHLORIDE
     Indication: CONJUNCTIVITIS ALLERGIC
  2. PAZEO [Suspect]
     Active Substance: OLOPATADINE HYDROCHLORIDE
     Indication: EYE PRURITUS
     Dosage: 3 GTT, QD
     Route: 047

REACTIONS (2)
  - Eye pain [Recovered/Resolved with Sequelae]
  - Eye irritation [Recovered/Resolved with Sequelae]

NARRATIVE: CASE EVENT DATE: 20180411
